FAERS Safety Report 18927477 (Version 1)
Quarter: 2021Q1

REPORT INFORMATION
  Report Type: Spontaneous
  Country: US (occurrence: US)
  Receive Date: 20210223
  Receipt Date: 20210223
  Transmission Date: 20210420
  Serious: Yes (Death)
  Sender: FDA-Public Use
  Company Number: None

PATIENT
  Age: 73 Year
  Sex: Male

DRUGS (12)
  1. SMZ/TMP DS [Concomitant]
     Active Substance: SULFAMETHOXAZOLE\TRIMETHOPRIM
  2. TAMSULOSIN [Concomitant]
     Active Substance: TAMSULOSIN
  3. CEFUROXIME. [Concomitant]
     Active Substance: CEFUROXIME
  4. FUROSEMIDE. [Concomitant]
     Active Substance: FUROSEMIDE
  5. ATENOLOL. [Concomitant]
     Active Substance: ATENOLOL
  6. METHOCARBAM [Concomitant]
     Active Substance: METHOCARBAMOL
  7. DOXYCYCL HYC [Concomitant]
  8. FLUTICASONE. [Concomitant]
     Active Substance: FLUTICASONE
  9. FINASTERIDE. [Concomitant]
     Active Substance: FINASTERIDE
  10. OMEPRAZOLE. [Concomitant]
     Active Substance: OMEPRAZOLE
  11. FORTEO [Suspect]
     Active Substance: TERIPARATIDE
     Indication: OSTEOPOROSIS
     Route: 058
     Dates: start: 20200817
  12. AZELASTINE. [Concomitant]
     Active Substance: AZELASTINE HYDROCHLORIDE

REACTIONS (1)
  - Death [None]
